FAERS Safety Report 4954422-0 (Version None)
Quarter: 2006Q1

REPORT INFORMATION
  Report Type: 
  Country: None (occurrence: None)
  Receive Date: 20060327
  Receipt Date: 20040901
  Transmission Date: 20060701
  Serious: Yes (Other)
  Sender: FDA-Public Use
  Company Number: DE-BRISTOL-MYERS SQUIBB COMPANY-13314455

PATIENT
  Age: 40 Year
  Sex: Male
  Weight: 73 kg

DRUGS (19)
  1. VIDEX [Suspect]
     Indication: HIV INFECTION
  2. SUSTIVA [Suspect]
     Indication: HIV INFECTION
     Dates: end: 20030901
  3. ZIDOVUDINE [Suspect]
     Indication: HIV INFECTION
     Dates: end: 20030901
  4. ZALCITABINE [Suspect]
     Indication: HIV INFECTION
     Dates: end: 20030901
  5. LAMIVUDINE [Suspect]
     Indication: HIV INFECTION
     Dates: end: 20030901
  6. INVIRASE [Suspect]
     Indication: HIV INFECTION
  7. RITONAVIR [Suspect]
     Indication: HIV INFECTION
     Dates: end: 20030901
  8. NELFINAVIR [Suspect]
     Indication: HIV INFECTION
     Dates: end: 20030901
  9. INDINIVIR SULFATE [Suspect]
     Indication: HIV INFECTION
     Dates: end: 20030901
  10. KALETRA [Suspect]
     Indication: HIV INFECTION
     Dates: start: 20030901
  11. ABACAVIR [Suspect]
     Indication: HIV INFECTION
     Dates: start: 20030901
  12. TENOFOVIR [Suspect]
     Indication: HIV INFECTION
     Dates: start: 20030901
  13. PROLEUKIN [Suspect]
     Indication: HIV INFECTION
     Dates: start: 20030901
  14. METAMIZOL [Concomitant]
     Indication: PAIN
     Dates: start: 20031101
  15. VALORON N [Concomitant]
     Indication: PAIN
     Dates: start: 20031101
  16. RANITIDINE [Concomitant]
     Indication: VOMITING
     Dates: start: 20040101
  17. PAROXETINE HCL [Concomitant]
     Indication: DEPRESSION
     Dates: start: 20040101
  18. ZOLPIDEM [Concomitant]
     Indication: DEPRESSION
     Dates: start: 20040101
  19. HYPERICIN [Concomitant]
     Indication: DEPRESSION
     Dates: start: 20040101

REACTIONS (21)
  - ABDOMINAL PAIN [None]
  - ANXIETY [None]
  - BLOOD BILIRUBIN INCREASED [None]
  - BLOOD CREATINE INCREASED [None]
  - BODY TEMPERATURE INCREASED [None]
  - BONE PAIN [None]
  - COLITIS ULCERATIVE [None]
  - DEHYDRATION [None]
  - DEPRESSION [None]
  - EROSIVE OESOPHAGITIS [None]
  - FIBROSARCOMA [None]
  - HAEMOGLOBIN INCREASED [None]
  - HEPATIC ENZYME INCREASED [None]
  - HEPATIC STEATOSIS [None]
  - HYPERCHOLESTEROLAEMIA [None]
  - HYPERTRIGLYCERIDAEMIA [None]
  - LIPOATROPHY [None]
  - NAUSEA [None]
  - SPLENOMEGALY [None]
  - THROMBOCYTHAEMIA [None]
  - VOMITING [None]
